FAERS Safety Report 17529018 (Version 4)
Quarter: 2020Q3

REPORT INFORMATION
  Report Type: Report from Study
  Country: JP (occurrence: JP)
  Receive Date: 20200311
  Receipt Date: 20200708
  Transmission Date: 20201102
  Serious: Yes (Hospitalization)
  Sender: FDA-Public Use
  Company Number: JP-EISAI MEDICAL RESEARCH-EC-2020-071348

PATIENT
  Age: 52 Year
  Sex: Male
  Weight: 74 kg

DRUGS (16)
  1. LENVATINIB [Suspect]
     Active Substance: LENVATINIB
     Indication: HEPATOCELLULAR CARCINOMA
     Dosage: AFTER BREAKFAST
     Route: 048
     Dates: start: 20190713, end: 20190729
  2. LENVATINIB [Suspect]
     Active Substance: LENVATINIB
     Dosage: AFTER BREAKFAST
     Route: 048
     Dates: start: 20190904, end: 20190911
  3. GLACTIV [Concomitant]
     Active Substance: SITAGLIPTIN
     Indication: DIABETES MELLITUS
     Route: 048
  4. TAKECAB [Concomitant]
     Active Substance: VONOPRAZAN FUMARATE
     Indication: GASTROINTESTINAL HAEMORRHAGE
     Route: 048
     Dates: start: 20200304
  5. DOSPEROPIN [Concomitant]
     Indication: HYPERTENSION
     Route: 048
  6. BIO?THREE [Concomitant]
     Active Substance: HERBALS
     Indication: DIARRHOEA
     Route: 048
     Dates: start: 20200219
  7. AMINOVACT [Concomitant]
     Active Substance: ISOLEUCINE\LEUCINE\VALINE
     Indication: OEDEMA
  8. CANDESARTAN. [Concomitant]
     Active Substance: CANDESARTAN
     Indication: HYPERTENSION
     Route: 048
  9. LENVATINIB [Suspect]
     Active Substance: LENVATINIB
     Dosage: AFTER BREAKFAST
     Route: 048
     Dates: start: 20190817, end: 20190903
  10. THYRADIN S [Concomitant]
     Active Substance: LEVOTHYROXINE SODIUM
     Indication: HYPOTHYROIDISM
     Route: 048
     Dates: start: 20190911
  11. LOPERAMIDE HYDROCHLORIDE. [Concomitant]
     Active Substance: LOPERAMIDE HYDROCHLORIDE
     Indication: DIARRHOEA
     Route: 048
     Dates: start: 20200219
  12. LENVATINIB [Suspect]
     Active Substance: LENVATINIB
     Dosage: AFTER BREAKFAST
     Route: 048
     Dates: start: 20191003, end: 20200219
  13. AMINOVACT [Concomitant]
     Active Substance: ISOLEUCINE\LEUCINE\VALINE
     Indication: ASCITES
     Route: 048
     Dates: start: 20200227
  14. FUROSEMIDE. [Concomitant]
     Active Substance: FUROSEMIDE
     Indication: ASCITES
     Route: 048
     Dates: start: 20200208
  15. AMINOVACT [Concomitant]
     Active Substance: ISOLEUCINE\LEUCINE\VALINE
     Indication: HYPOALBUMINAEMIA
  16. FUROSEMIDE. [Concomitant]
     Active Substance: FUROSEMIDE
     Indication: OEDEMA

REACTIONS (3)
  - Ascites [Recovering/Resolving]
  - Anaemia [Recovering/Resolving]
  - Gastric ulcer [Recovering/Resolving]

NARRATIVE: CASE EVENT DATE: 20200208
